FAERS Safety Report 7706675-3 (Version None)
Quarter: 2011Q3

REPORT INFORMATION
  Report Type: 
  Country: None (occurrence: None)
  Receive Date: 20110824
  Receipt Date: 20110627
  Transmission Date: 20111222
  Serious: No
  Sender: FDA-Public Use
  Company Number: US-GLAXOSMITHKLINE-A0935030A

PATIENT
  Sex: Male

DRUGS (1)
  1. ARZERRA [Suspect]
     Dosage: 200MG UNKNOWN
     Route: 042
     Dates: start: 20110627

REACTIONS (3)
  - BURNING SENSATION [None]
  - URTICARIA [None]
  - RASH [None]
